FAERS Safety Report 7000615-0 (Version None)
Quarter: 2010Q3

REPORT INFORMATION
  Report Type: 
  Country: None (occurrence: None)
  Receive Date: 20100920
  Receipt Date: 20100913
  Transmission Date: 20110219
  Serious: Yes (Other)
  Sender: FDA-Public Use
  Company Number: GB-JNJFOC-20100903793

PATIENT
  Age: 31 Year
  Sex: Female

DRUGS (2)
  1. MEBENDAZOLE [Suspect]
     Indication: PRODUCT USED FOR UNKNOWN INDICATION
     Route: 048
  2. MEBENDAZOLE [Suspect]
     Route: 048

REACTIONS (1)
  - BLISTER [None]
